FAERS Safety Report 7180041-4 (Version None)
Quarter: 2010Q4

REPORT INFORMATION
  Report Type: 
  Country: None (occurrence: None)
  Receive Date: 20101208
  Receipt Date: 20101130
  Transmission Date: 20110411
  Serious: Yes (Death, Hospitalization)
  Sender: FDA-Public Use
  Company Number: UTC-002784

PATIENT
  Sex: Male
  Weight: 77.1 kg

DRUGS (2)
  1. TYVASO [Suspect]
     Dosage: INHALATION
     Route: 055
  2. REMODULIN [Suspect]
     Dosage: INTRAVENOUS
     Route: 042

REACTIONS (2)
  - BRADYCARDIA [None]
  - SYNCOPE [None]
